FAERS Safety Report 14356848 (Version 2)
Quarter: 2018Q1

REPORT INFORMATION
  Report Type: Report from Study
  Country: DE (occurrence: DE)
  Receive Date: 20180105
  Receipt Date: 20180118
  Transmission Date: 20180509
  Serious: Yes (Death)
  Sender: FDA-Public Use
  Company Number: DE-TEVA-2017-DE-842395

PATIENT
  Age: 0 Year

DRUGS (3)
  1. VINCRISTINE [Suspect]
     Active Substance: VINCRISTINE
     Indication: RHABDOID TUMOUR OF THE KIDNEY
     Route: 065
  2. DOXORUBICIN [Suspect]
     Active Substance: DOXORUBICIN
     Indication: RHABDOID TUMOUR OF THE KIDNEY
     Route: 065
  3. ACTINOMYCIN D [Suspect]
     Active Substance: DACTINOMYCIN
     Indication: RHABDOID TUMOUR OF THE KIDNEY
     Route: 065

REACTIONS (1)
  - Death [Fatal]
